FAERS Safety Report 24711769 (Version 4)
Quarter: 2025Q2

REPORT INFORMATION
  Report Type: Report from Study
  Country: CO (occurrence: CO)
  Receive Date: 20241209
  Receipt Date: 20250501
  Transmission Date: 20250716
  Serious: Yes (Hospitalization, Other)
  Sender: ASTELLAS
  Company Number: CO-ASTELLAS-2024-AER-009230

PATIENT
  Age: 71 Year
  Sex: Female
  Weight: 52 kg

DRUGS (9)
  1. TACROLIMUS [Suspect]
     Active Substance: TACROLIMUS
     Indication: Renal transplant
     Route: 048
  2. TACROLIMUS [Suspect]
     Active Substance: TACROLIMUS
     Route: 048
     Dates: start: 202504
  3. TACROLIMUS [Interacting]
     Active Substance: TACROLIMUS
     Indication: Renal transplant
     Dosage: 01 CAPSULE OF 5 MG
     Route: 048
     Dates: end: 20240922
  4. TACROLIMUS [Interacting]
     Active Substance: TACROLIMUS
     Dosage: 2 CAPSULES OF 5 MG
     Route: 048
     Dates: start: 20240923
  5. TACROLIMUS [Interacting]
     Active Substance: TACROLIMUS
     Route: 048
     Dates: start: 202410
  6. ISONIAZID\RIFAMPIN [Interacting]
     Active Substance: ISONIAZID\RIFAMPIN
     Indication: Tuberculosis of central nervous system
     Route: 050
     Dates: start: 202410
  7. PYRIDOXINE [Concomitant]
     Active Substance: PYRIDOXINE
     Indication: Product used for unknown indication
     Route: 050
  8. ATORVASTATIN [Concomitant]
     Active Substance: ATORVASTATIN
     Indication: Product used for unknown indication
     Route: 050
  9. MICOFENOLATO [MYCOPHENOLATE MOFETIL] [Concomitant]
     Indication: Product used for unknown indication
     Route: 050

REACTIONS (5)
  - Tuberculosis of central nervous system [Recovering/Resolving]
  - Immunosuppressant drug level decreased [Unknown]
  - Sinusitis [Recovered/Resolved]
  - Inappropriate schedule of product administration [Unknown]
  - Drug interaction [Unknown]

NARRATIVE: CASE EVENT DATE: 20230101
